FAERS Safety Report 6245215-5 (Version None)
Quarter: 2009Q2

REPORT INFORMATION
  Report Type: 
  Country: None (occurrence: None)
  Receive Date: 20090625
  Receipt Date: 20090619
  Transmission Date: 20091009
  Serious: Yes (Death, Hospitalization)
  Sender: FDA-Public Use
  Company Number: PHHO2007ES09291

PATIENT
  Sex: Female

DRUGS (15)
  1. CYCLOSPORINE [Suspect]
     Indication: RENAL TRANSPLANT
     Dosage: 75 MG, BID
     Route: 048
     Dates: start: 20041121
  2. MYCOPHENOLATE MOFETIL [Suspect]
     Indication: RENAL TRANSPLANT
     Dosage: 1000 MG, BID
     Route: 048
     Dates: start: 20041121
  3. CORTICOSTEROIDS [Suspect]
     Indication: RENAL TRANSPLANT
     Route: 065
  4. PREDNISONE [Concomitant]
     Dates: start: 20050901
  5. METHYLPREDNISOLONE [Concomitant]
     Dosage: 500 MG, QD
     Route: 042
     Dates: start: 20041121, end: 20041122
  6. RANITIDINE [Concomitant]
  7. CARDYL [Concomitant]
  8. CALCIUM SANDOZ [Concomitant]
  9. AMLODIPINE [Concomitant]
  10. AMOXICILLIN [Concomitant]
  11. AMOXICILLIN AND CLAVULANATE POTASSIUM [Concomitant]
  12. DARBEPOETIN ALFA [Concomitant]
  13. NORFLOXACIN [Concomitant]
  14. PRAVASTATIN [Concomitant]
  15. ANTI-THYMOCYTE GLOBULIN NOS [Concomitant]

REACTIONS (14)
  - ASPIRATION PLEURAL CAVITY [None]
  - ATELECTASIS [None]
  - DYSPNOEA [None]
  - FACE OEDEMA [None]
  - LOCALISED OEDEMA [None]
  - LYMPHADENOPATHY [None]
  - MALIGNANT NEOPLASM PROGRESSION [None]
  - MUSCULOSKELETAL PAIN [None]
  - NEOPLASM MALIGNANT [None]
  - PLEURAL EFFUSION [None]
  - PLEURITIC PAIN [None]
  - PULMONARY MASS [None]
  - RESPIRATORY FAILURE [None]
  - SUPERIOR VENA CAVAL OCCLUSION [None]
